FAERS Safety Report 8000775-9 (Version None)
Quarter: 2011Q4

REPORT INFORMATION
  Report Type: 
  Country: None (occurrence: None)
  Receive Date: 20111222
  Receipt Date: 20111219
  Transmission Date: 20120403
  Serious: Yes (Life-Threatening, Hospitalization)
  Sender: FDA-Public Use
  Company Number: FI-B.I. PHARMACEUTICALS,INC./RIDGEFIELD-2011-SW-00480SF

PATIENT
  Sex: Male
  Weight: 84 kg

DRUGS (13)
  1. ARICEPT [Concomitant]
     Dosage: 10 MG
  2. DIGOXIN SEMI [Concomitant]
  3. SPIRONOLACTONE [Concomitant]
     Dosage: 80 MG
  4. ACETAMINOPHEN [Concomitant]
     Dosage: 3 G
  5. FURESIS [Concomitant]
     Dosage: 25 MG
  6. PRADAXA [Suspect]
     Indication: ATRIAL FIBRILLATION
     Dosage: 220 MG
     Dates: start: 20110824, end: 20111009
  7. GALVUS [Concomitant]
     Dosage: 100 MG
  8. CALCICHEW FORTE D3 [Concomitant]
  9. ORMOX [Concomitant]
     Dosage: 20 MG
  10. THYROXIN [Concomitant]
     Dosage: 25 MCG
  11. PRIMASPAN [Concomitant]
     Dosage: 50 MG
  12. ATACAND [Concomitant]
     Dosage: 4 MG
  13. SPECICOR [Concomitant]
     Dosage: 95 MG

REACTIONS (3)
  - MELAENA [None]
  - PULMONARY EMBOLISM [None]
  - HAEMOGLOBIN DECREASED [None]
